FAERS Safety Report 9603113 (Version 1)
Quarter: 2013Q4

REPORT INFORMATION
  Report Type: Report from Study
  Country: FR (occurrence: FR)
  Receive Date: 20131007
  Receipt Date: 20131007
  Transmission Date: 20140711
  Serious: Yes (Hospitalization)
  Sender: FDA-Public Use
  Company Number: FR-GLAXOSMITHKLINE-B0927928A

PATIENT
  Age: 7 Year
  Sex: Female

DRUGS (2)
  1. TOPOTECAN [Suspect]
     Indication: NEOPLASM
     Dosage: .65MG PER DAY
     Route: 042
     Dates: start: 20130909, end: 20130913
  2. TEMOZOLOMIDE [Suspect]
     Indication: NEOPLASM
     Dosage: 125MG PER DAY
     Route: 048
     Dates: start: 20130909, end: 20130913

REACTIONS (1)
  - Febrile bone marrow aplasia [Recovered/Resolved]
